FAERS Safety Report 12202619 (Version 2)
Quarter: 2016Q2

REPORT INFORMATION
  Report Type: Spontaneous
  Country: US (occurrence: US)
  Receive Date: 20160322
  Receipt Date: 20160502
  Transmission Date: 20160815
  Serious: No
  Sender: FDA-Public Use
  Company Number: US-ASTRAZENECA-2016SE28131

PATIENT
  Sex: Female

DRUGS (4)
  1. METOPROLOL. [Suspect]
     Active Substance: METOPROLOL
     Route: 065
  2. TIKOSYN [Suspect]
     Active Substance: DOFETILIDE
     Route: 065
     Dates: start: 20160118
  3. CRESTOR [Suspect]
     Active Substance: ROSUVASTATIN CALCIUM
     Indication: BLOOD CHOLESTEROL
     Route: 048
     Dates: start: 20160213
  4. COLCRYS [Suspect]
     Active Substance: COLCHICINE
     Route: 065

REACTIONS (2)
  - Fatigue [Unknown]
  - Chest pain [Not Recovered/Not Resolved]
